FAERS Safety Report 6186620-5 (Version None)
Quarter: 2009Q2

REPORT INFORMATION
  Report Type: 
  Country: None (occurrence: None)
  Receive Date: 20090512
  Receipt Date: 20090501
  Transmission Date: 20091009
  Serious: Yes (Life-Threatening, Hospitalization)
  Sender: FDA-Public Use
  Company Number: US-PFIZER INC-2009192070

PATIENT
  Sex: Male
  Weight: 81.633 kg

DRUGS (7)
  1. SUNITINIB MALATE [Suspect]
     Indication: NEOPLASM MALIGNANT
     Dosage: 12.5 MG, 3X/DAY
     Route: 048
     Dates: start: 20090312, end: 20090325
  2. CISPLATIN [Suspect]
     Indication: NEOPLASM MALIGNANT
     Dosage: 149 MG, EVERY 21 DAYS, TDD 149 MG
     Route: 042
     Dates: start: 20090312, end: 20090312
  3. *PEMETREXED [Suspect]
     Indication: NEOPLASM MALIGNANT
     Dosage: 995 MG, EVERY 21 DAYS, TDD 995 MG
     Route: 042
     Dates: start: 20090312, end: 20090312
  4. INSULIN GLARGINE [Concomitant]
     Dosage: UNK
     Route: 058
     Dates: start: 20080801
  5. AMLODIPINE [Concomitant]
     Dosage: UNK
     Route: 048
     Dates: start: 20080601
  6. PRILOSEC [Concomitant]
     Dosage: UNK
     Route: 048
     Dates: start: 20050801
  7. INSULIN LISPRO [Concomitant]
     Dosage: UNK
     Route: 058
     Dates: start: 20050801

REACTIONS (1)
  - MYOCARDIAL INFARCTION [None]
